FAERS Safety Report 7362125-0 (Version None)
Quarter: 2011Q1

REPORT INFORMATION
  Report Type: 
  Country: None (occurrence: None)
  Receive Date: 20110318
  Receipt Date: 20110221
  Transmission Date: 20110831
  Serious: No
  Sender: FDA-Public Use
  Company Number: US-B.I. PHARMACEUTICALS,INC./RIDGEFIELD-2011-BP-01159BP

PATIENT
  Sex: Male

DRUGS (10)
  1. PRADAXA [Suspect]
     Indication: DRUG THERAPY CHANGED
  2. POTASSIUM CHLORIDE [Concomitant]
     Indication: PROPHYLAXIS
     Route: 048
  3. FUROSEMIDE [Concomitant]
     Indication: CARDIAC FAILURE CONGESTIVE
     Route: 048
  4. LISINOPRIL [Concomitant]
     Indication: CARDIAC FAILURE CONGESTIVE
     Route: 048
     Dates: start: 20101201
  5. PRADAXA [Suspect]
     Indication: CEREBROVASCULAR ACCIDENT PROPHYLAXIS
     Dosage: 300 MG
     Route: 048
     Dates: start: 20101201
  6. AMIODARONE HCL [Concomitant]
     Indication: HEART RATE INCREASED
     Route: 048
  7. TOPROL ER [Concomitant]
     Route: 048
  8. THYROXINE [Concomitant]
     Indication: HYPOTHYROIDISM
     Route: 048
  9. DIGOXIN [Concomitant]
     Indication: CARDIAC FAILURE CONGESTIVE
     Route: 048
  10. VYTORIN [Concomitant]
     Indication: BLOOD CHOLESTEROL INCREASED
     Route: 048

REACTIONS (3)
  - HEART RATE INCREASED [None]
  - FLATULENCE [None]
  - DIARRHOEA [None]
